FAERS Safety Report 6833410-3 (Version None)
Quarter: 2010Q3

REPORT INFORMATION
  Report Type: 
  Country: None (occurrence: None)
  Receive Date: 20100712
  Receipt Date: 20070504
  Transmission Date: 20110219
  Serious: No
  Sender: FDA-Public Use
  Company Number: US-PFIZER INC-2007022562

PATIENT
  Sex: Male
  Weight: 83.91 kg

DRUGS (8)
  1. CHANTIX [Suspect]
     Indication: SMOKING CESSATION THERAPY
     Dates: start: 20070314
  2. VALIUM [Concomitant]
  3. SOMA [Concomitant]
  4. MS CONTIN [Concomitant]
  5. PERCOCET [Concomitant]
  6. OXYCODONE HCL [Concomitant]
  7. ADVAIR DISKUS 100/50 [Concomitant]
  8. DUONEB [Concomitant]

REACTIONS (1)
  - DYSGEUSIA [None]
